FAERS Safety Report 14516606 (Version 2)
Quarter: 2018Q1

REPORT INFORMATION
  Report Type: Report from Study
  Country: None (occurrence: BE)
  Receive Date: 20180212
  Receipt Date: 20180314
  Transmission Date: 20180509
  Serious: Yes (Hospitalization)
  Sender: FDA-Public Use
  Company Number: BE-ABBVIE-18K-013-2242295-00

PATIENT
  Sex: Female

DRUGS (4)
  1. DUODOPA [Suspect]
     Active Substance: CARBIDOPA\LEVODOPA
     Indication: PARKINSON^S DISEASE
     Dosage: AM: 6.5ML; CD: 2.1ML/H FOR 16HRS; ED: 2ML
     Route: 050
     Dates: start: 20140811, end: 20140814
  2. DUODOPA [Suspect]
     Active Substance: CARBIDOPA\LEVODOPA
     Dosage: MD: 5.5 ML CD: 2.4 ML/HR DURING 16 HRS?ED: 2.0 ML
     Route: 050
     Dates: start: 20180124
  3. DUODOPA [Suspect]
     Active Substance: CARBIDOPA\LEVODOPA
     Dosage: AM: 6.5ML; CD: 2.3ML/H FOR 16HRS; ED: 2ML
     Route: 050
     Dates: start: 20141201, end: 20180124
  4. DUODOPA [Suspect]
     Active Substance: CARBIDOPA\LEVODOPA
     Dosage: DOSES CONTINUOUSLY MONITORED AND ADAPTED
     Route: 050
     Dates: start: 20140814, end: 20141201

REACTIONS (2)
  - Fall [Recovered/Resolved]
  - Hypotension [Unknown]
